FAERS Safety Report 9008830 (Version 1)
Quarter: 2013Q1

REPORT INFORMATION
  Report Type: Report from Study
  Country: US (occurrence: US)
  Receive Date: 20130111
  Receipt Date: 20130111
  Transmission Date: 20140127
  Serious: No
  Sender: FDA-Public Use
  Company Number: US-VERTEX PHARMACEUTICALS INC.-2013-000478

PATIENT
  Sex: Male

DRUGS (10)
  1. VX-950 (TELAPREVIR) [Suspect]
     Indication: HEPATITIS C
     Dosage: 750 MG, TID
     Route: 048
  2. PEGASYS [Suspect]
     Indication: HEPATITIS C
     Dosage: 180 ?G, 1X/MONTH
     Route: 058
  3. RIBAVIRIN [Suspect]
     Indication: HEPATITIS C
     Dosage: 200 MG, UNK
     Route: 048
  4. LASIX [Concomitant]
     Dosage: 20 MG, UNK
  5. PROPRANOLOL [Concomitant]
     Dosage: 10 MG, UNK
  6. SPIRONOLACTON [Concomitant]
     Dosage: 50 MG, UNK
  7. MULTIVITAMIN                       /00097801/ [Concomitant]
  8. POTASSIUM [Concomitant]
     Dosage: 75 MG, UNK
  9. CALCIUM [Concomitant]
  10. VITAMIN D /00107901/ [Concomitant]

REACTIONS (1)
  - Drug ineffective [Unknown]
